FAERS Safety Report 9878644 (Version 2)
Quarter: 2014Q1

REPORT INFORMATION
  Report Type: Spontaneous
  Country: US (occurrence: US)
  Receive Date: 20140206
  Receipt Date: 20140206
  Transmission Date: 20141002
  Serious: No
  Sender: FDA-Public Use
  Company Number: US-ALLERGAN-1308909US

PATIENT
  Age: 53 Year
  Sex: Female
  Weight: 47.35 kg

DRUGS (5)
  1. BOTOX [Suspect]
     Indication: SKIN WRINKLING
     Dosage: 32 UNITS, SINGLE
     Route: 030
     Dates: start: 20130515, end: 20130515
  2. BOTOX [Suspect]
     Indication: SKIN WRINKLING
  3. BOTOX [Suspect]
     Indication: SKIN WRINKLING
  4. BOTOX [Suspect]
     Indication: SKIN WRINKLING
  5. SYNTHROID [Concomitant]
     Indication: HYPOTHYROIDISM
     Dosage: 112 MCG, DAILY
     Route: 048

REACTIONS (2)
  - Eye swelling [Recovering/Resolving]
  - Skin wrinkling [Recovering/Resolving]
